FAERS Safety Report 6433946-3 (Version None)
Quarter: 2009Q4

REPORT INFORMATION
  Report Type: 
  Country: None (occurrence: None)
  Receive Date: 20091110
  Receipt Date: 20091104
  Transmission Date: 20100525
  Serious: Yes (Other)
  Sender: FDA-Public Use
  Company Number: JP-BAYER-200812659BYL

PATIENT
  Age: 75 Year
  Sex: Male
  Weight: 70 kg

DRUGS (7)
  1. NEXAVAR [Suspect]
     Indication: RENAL CELL CARCINOMA
     Dosage: UNIT DOSE: 200 MG
     Route: 048
     Dates: start: 20080702, end: 20080704
  2. NEXAVAR [Suspect]
     Dosage: UNIT DOSE: 200 MG
     Route: 048
     Dates: start: 20080705, end: 20080812
  3. NEXAVAR [Suspect]
     Dosage: UNIT DOSE: 200 MG
     Route: 048
     Dates: start: 20080813, end: 20080920
  4. WARFARIN SODIUM [Concomitant]
     Indication: DEEP VEIN THROMBOSIS
     Route: 048
     Dates: start: 20050405
  5. ASPIRIN [Concomitant]
     Indication: DEEP VEIN THROMBOSIS
     Route: 048
     Dates: start: 20050405
  6. ALFAROL [Concomitant]
     Indication: OSTEOPOROSIS
     Route: 048
     Dates: start: 20050405
  7. SENNOSIDE [Concomitant]
     Indication: CONSTIPATION
     Route: 048
     Dates: start: 20050405, end: 20090519

REACTIONS (4)
  - ALOPECIA [None]
  - GLOSSITIS [None]
  - HYPERTENSION [None]
  - PNEUMONIA [None]
